FAERS Safety Report 26129111 (Version 1)
Quarter: 2025Q4

REPORT INFORMATION
  Report Type: Spontaneous
  Country: US (occurrence: US)
  Receive Date: 20251208
  Receipt Date: 20251208
  Transmission Date: 20260118
  Serious: Yes (Disabling, Other)
  Sender: ACCORD
  Company Number: US-Accord-516957

PATIENT
  Age: 79 Year
  Sex: Female
  Weight: 68 kg

DRUGS (2)
  1. HYDROXYCHLOROQUINE [Suspect]
     Active Substance: HYDROXYCHLOROQUINE
     Indication: Rheumatoid arthritis
     Dosage: ENTIRE TREATMENT PERIOD OR 5.9 MG/KG/DAY WHEN ADJUSTED FOR RBW AND 6.5 MG/KG/DAY BY THE IBW METHOD
  2. HYDROXYCHLOROQUINE [Suspect]
     Active Substance: HYDROXYCHLOROQUINE
     Indication: Systemic lupus erythematosus
     Dosage: ENTIRE TREATMENT PERIOD OR 5.9 MG/KG/DAY WHEN ADJUSTED FOR RBW AND 6.5 MG/KG/DAY BY THE IBW METHOD

REACTIONS (2)
  - Retinopathy [Not Recovered/Not Resolved]
  - Chronic kidney disease [Unknown]
